FAERS Safety Report 8233854-1 (Version None)
Quarter: 2012Q1

REPORT INFORMATION
  Report Type: 
  Country: None (occurrence: None)
  Receive Date: 20120326
  Receipt Date: 20120321
  Transmission Date: 20120608
  Serious: Yes (Other)
  Sender: FDA-Public Use
  Company Number: US-BAYER-2011-114305

PATIENT
  Sex: Female
  Weight: 66 kg

DRUGS (2)
  1. YASMIN [Suspect]
     Dosage: UNK
     Dates: start: 20090323, end: 20090627
  2. YASMIN [Suspect]
     Indication: CONTRACEPTION
     Dosage: UNK
     Dates: start: 20020730, end: 20091027

REACTIONS (4)
  - INJURY [None]
  - ABDOMINAL PAIN [None]
  - PAIN [None]
  - GALLBLADDER DISORDER [None]
